FAERS Safety Report 6739025-X (Version None)
Quarter: 2010Q2

REPORT INFORMATION
  Report Type: 
  Country: None (occurrence: None)
  Receive Date: 20100524
  Receipt Date: 20100524
  Transmission Date: 20101027
  Serious: Yes (Death)
  Sender: FDA-Public Use
  Company Number: None

PATIENT
  Age: 85 Year
  Sex: Female
  Weight: 74.8435 kg

DRUGS (1)
  1. ZOLEDRONIC ACID [Suspect]
     Indication: BONE DENSITY DECREASED
     Dosage: IV BAG ONCE IV DIP
     Route: 041
     Dates: start: 20080606, end: 20080606

REACTIONS (7)
  - CONDITION AGGRAVATED [None]
  - DIARRHOEA [None]
  - FAECAL INCONTINENCE [None]
  - INSOMNIA [None]
  - INTERSTITIAL LUNG DISEASE [None]
  - NO THERAPEUTIC RESPONSE [None]
  - STRESS [None]
